FAERS Safety Report 11461407 (Version 1)
Quarter: 2015Q3

REPORT INFORMATION
  Report Type: Spontaneous
  Country: US (occurrence: US)
  Receive Date: 20150831
  Receipt Date: 20150831
  Transmission Date: 20151125
  Serious: No
  Sender: FDA-Public Use
  Company Number: US-ELI_LILLY_AND_COMPANY-US201006007993

PATIENT
  Sex: Male

DRUGS (5)
  1. KLONOPIN [Concomitant]
     Active Substance: CLONAZEPAM
  2. CYMBALTA [Suspect]
     Active Substance: DULOXETINE HYDROCHLORIDE
     Dosage: 30 MG, QOD
  3. CYMBALTA [Suspect]
     Active Substance: DULOXETINE HYDROCHLORIDE
     Indication: GENERALISED ANXIETY DISORDER
     Dosage: 30 MG, DAILY (1/D)
  4. CYMBALTA [Suspect]
     Active Substance: DULOXETINE HYDROCHLORIDE
     Dosage: 60 MG, DAILY (1/D)
  5. CYMBALTA [Suspect]
     Active Substance: DULOXETINE HYDROCHLORIDE
     Dosage: 30 MG, DAILY (1/D)

REACTIONS (28)
  - Diarrhoea [Unknown]
  - Drug withdrawal syndrome [Not Recovered/Not Resolved]
  - Dry mouth [Unknown]
  - Chest pain [Unknown]
  - Feeling abnormal [Unknown]
  - Vomiting [Unknown]
  - Irritability [Unknown]
  - Nightmare [Unknown]
  - Feeling abnormal [Not Recovered/Not Resolved]
  - Drug ineffective [Unknown]
  - Crying [Unknown]
  - Agitation [Unknown]
  - Depression [Not Recovered/Not Resolved]
  - Panic attack [Unknown]
  - Somnolence [Unknown]
  - Hyperhidrosis [Unknown]
  - Blood pressure increased [Unknown]
  - Fatigue [Unknown]
  - Headache [Unknown]
  - Impatience [Unknown]
  - Nausea [Unknown]
  - Paraesthesia [Unknown]
  - Decreased appetite [Unknown]
  - Disorientation [Unknown]
  - Sexual dysfunction [Unknown]
  - Mood swings [Unknown]
  - Dizziness [Unknown]
  - Insomnia [Unknown]
